FAERS Safety Report 20191814 (Version 1)
Quarter: 2021Q4

REPORT INFORMATION
  Report Type: Spontaneous
  Country: ES (occurrence: ES)
  Receive Date: 20211216
  Receipt Date: 20211216
  Transmission Date: 20220303
  Serious: Yes (Life-Threatening, Hospitalization, Other)
  Sender: FDA-Public Use
  Company Number: ES-KRKA-ES2021K14778LIT

PATIENT
  Age: 80 Year
  Sex: Female

DRUGS (11)
  1. FLUOXETINE [Interacting]
     Active Substance: FLUOXETINE HYDROCHLORIDE
     Indication: Depression
     Dosage: UNK
     Route: 048
  2. MOXIFLOXACIN [Interacting]
     Active Substance: MOXIFLOXACIN
     Indication: Skin ulcer
     Dosage: UNK
     Route: 065
  3. SOTALOL [Suspect]
     Active Substance: SOTALOL
     Indication: Atrial fibrillation
     Dosage: 80 MILLIGRAM
     Route: 065
     Dates: start: 2016
  4. SOTALOL [Suspect]
     Active Substance: SOTALOL
     Dosage: UNK
     Route: 065
     Dates: start: 2018
  5. SOTALOL [Suspect]
     Active Substance: SOTALOL
     Dosage: 80 MILLIGRAM
     Route: 065
  6. CHLORTHALIDONE [Concomitant]
     Active Substance: CHLORTHALIDONE
     Indication: Hypertension
     Dosage: 50 MILLIGRAM
     Route: 065
  7. IRBESARTAN [Concomitant]
     Active Substance: IRBESARTAN
     Indication: Hypertension
     Dosage: 300 MILLIGRAM
     Route: 065
  8. FELODIPINE [Concomitant]
     Active Substance: FELODIPINE
     Indication: Hypertension
     Dosage: 5 MILLIGRAM
     Route: 065
  9. GLIMEPIRIDE [Concomitant]
     Active Substance: GLIMEPIRIDE
     Indication: Type 2 diabetes mellitus
     Dosage: 20 MILLIGRAM
     Route: 065
  10. LINAGLIPTIN [Concomitant]
     Active Substance: LINAGLIPTIN
     Indication: Type 2 diabetes mellitus
     Dosage: 5 MILLIGRAM
     Route: 065
  11. SINTROM [Concomitant]
     Active Substance: ACENOCOUMAROL
     Indication: Anticoagulation drug level therapeutic
     Dosage: UNK
     Route: 065

REACTIONS (9)
  - Torsade de pointes [Recovered/Resolved]
  - Drug interaction [Recovering/Resolving]
  - Electrocardiogram QT prolonged [Recovering/Resolving]
  - Bradyphrenia [Recovered/Resolved]
  - Cardio-respiratory arrest [Recovered/Resolved]
  - Dizziness [Recovered/Resolved]
  - Syncope [Recovered/Resolved]
  - Tinnitus [Recovered/Resolved]
  - Ventricular tachycardia [Recovered/Resolved]
